FAERS Safety Report 4894253-3 (Version None)
Quarter: 2006Q1

REPORT INFORMATION
  Report Type: 
  Country: None (occurrence: None)
  Receive Date: 20060127
  Receipt Date: 20051117
  Transmission Date: 20060701
  Serious: No
  Sender: FDA-Public Use
  Company Number: US-GLAXOSMITHKLINE-A0583268A

PATIENT
  Age: 47 Year
  Sex: Male
  Weight: 100 kg

DRUGS (1)
  1. ZYBAN [Suspect]
     Dosage: 150MG TWICE PER DAY
     Route: 048
     Dates: start: 20051025

REACTIONS (4)
  - DECREASED APPETITE [None]
  - DEPRESSION [None]
  - INSOMNIA [None]
  - LETHARGY [None]
